FAERS Safety Report 16839465 (Version 1)
Quarter: 2019Q3

REPORT INFORMATION
  Report Type: Spontaneous
  Country: US (occurrence: US)
  Receive Date: 20190923
  Receipt Date: 20190923
  Transmission Date: 20191005
  Serious: No
  Sender: FDA-Public Use
  Company Number: US-PFIZER INC-2019407213

PATIENT
  Age: 77 Year
  Sex: Male
  Weight: 80.29 kg

DRUGS (3)
  1. GABAPENTIN. [Suspect]
     Active Substance: GABAPENTIN
     Dosage: 1500 MG, DAILY [300MG ONE IN MORNING BY MOUTH ONE AT NOON AND THREE AT BEDTIME]
     Route: 048
  2. GABAPENTIN. [Suspect]
     Active Substance: GABAPENTIN
     Dosage: 300 MG, 3X/DAY
     Route: 048
  3. GABAPENTIN. [Suspect]
     Active Substance: GABAPENTIN
     Indication: NEUROPATHY PERIPHERAL
     Dosage: 300 MG, 2X/DAY [STARTED OUT AT SMALLER DOSE ONE IN MORNING ONE AT BEDTIME]
     Route: 048

REACTIONS (2)
  - Off label use [Unknown]
  - Drug ineffective for unapproved indication [Unknown]
